FAERS Safety Report 24739828 (Version 1)
Quarter: 2024Q4

REPORT INFORMATION
  Report Type: Spontaneous
  Country: US (occurrence: US)
  Receive Date: 20241216
  Receipt Date: 20241216
  Transmission Date: 20250115
  Serious: No
  Sender: SANOFI AVENTIS
  Company Number: US-SA-2024SA369792

PATIENT
  Sex: Male
  Weight: 104.49 kg

DRUGS (3)
  1. DUPIXENT [Suspect]
     Active Substance: DUPILUMAB
     Indication: Nasal polyps
     Dosage: 300 MG, QOW
  2. METOPROLOL SUCCINATE [Concomitant]
     Active Substance: METOPROLOL SUCCINATE
  3. XARELTO [Concomitant]
     Active Substance: RIVAROXABAN

REACTIONS (3)
  - Anosmia [Recovered/Resolved]
  - Ageusia [Recovered/Resolved]
  - Therapeutic response decreased [Recovered/Resolved]
